FAERS Safety Report 8199777-1 (Version None)
Quarter: 2012Q1

REPORT INFORMATION
  Report Type: 
  Country: None (occurrence: None)
  Receive Date: 20120312
  Receipt Date: 20120221
  Transmission Date: 20120608
  Serious: No
  Sender: FDA-Public Use
  Company Number: JP-ASTELLAS-2012JP001301

PATIENT
  Age: 76 Year
  Sex: Male

DRUGS (1)
  1. VESICARE [Suspect]
     Indication: HYPERTONIC BLADDER
     Dosage: UNK
     Route: 048

REACTIONS (1)
  - NO ADVERSE EVENT [None]
